FAERS Safety Report 9897210 (Version 1)
Quarter: 2014Q1

REPORT INFORMATION
  Report Type: Spontaneous
  Country: US (occurrence: US)
  Receive Date: 20140214
  Receipt Date: 20140214
  Transmission Date: 20141002
  Serious: Yes (Other)
  Sender: FDA-Public Use
  Company Number: US-AMGEN-USASP2014010029

PATIENT
  Age: 64 Year
  Sex: Male

DRUGS (9)
  1. ENBREL [Suspect]
     Indication: PSORIASIS
     Dosage: 50 MG, QWK
     Route: 058
     Dates: start: 201108
  2. VIAGRA [Concomitant]
     Dosage: UNK
  3. FISH OIL [Concomitant]
     Dosage: UNK
  4. BABY ASPIRIN [Concomitant]
     Dosage: UNK
  5. VITAMIN C                          /00008001/ [Concomitant]
     Dosage: UNK
  6. COMBGEN [Concomitant]
     Dosage: UNK
  7. GEMFIBROZIL [Concomitant]
     Dosage: UNK
  8. CLOBETASOL PROPIONATE E [Concomitant]
     Dosage: UNK
  9. TRAVATAN [Concomitant]
     Dosage: UNK

REACTIONS (1)
  - Eye disorder [Unknown]
